FAERS Safety Report 5331949-3 (Version None)
Quarter: 2007Q2

REPORT INFORMATION
  Report Type: 
  Country: None (occurrence: None)
  Receive Date: 20070523
  Receipt Date: 20070517
  Transmission Date: 20071010
  Serious: Yes (Hospitalization)
  Sender: FDA-Public Use
  Company Number: US-JNJFOC-20070504845

PATIENT
  Sex: Male
  Weight: 102.06 kg

DRUGS (1)
  1. LEVAQUIN [Suspect]
     Indication: BIOPSY
     Route: 048

REACTIONS (2)
  - ESCHERICHIA INFECTION [None]
  - PYREXIA [None]
